FAERS Safety Report 15625491 (Version 1)
Quarter: 2018Q4

REPORT INFORMATION
  Report Type: Spontaneous
  Country: US (occurrence: US)
  Receive Date: 20181112
  Receipt Date: 20181112
  Transmission Date: 20190205
  Serious: Yes (Hospitalization)
  Sender: FDA-Public Use
  Company Number: None

PATIENT
  Age: 69 Year
  Sex: Male
  Weight: 73.6 kg

DRUGS (11)
  1. ATORVASTATIN [Concomitant]
     Active Substance: ATORVASTATIN
  2. BICALUTAMIDE. [Concomitant]
     Active Substance: BICALUTAMIDE
  3. INSULIN [Concomitant]
     Active Substance: INSULIN NOS
  4. CASODEX [Suspect]
     Active Substance: BICALUTAMIDE
     Dates: end: 20180805
  5. NICOTINE. [Concomitant]
     Active Substance: NICOTINE
  6. TAMSULOSIN [Concomitant]
     Active Substance: TAMSULOSIN
  7. LEUPROLIDE ACETATE. [Suspect]
     Active Substance: LEUPROLIDE ACETATE
     Dates: end: 20180717
  8. LOSARTAN. [Concomitant]
     Active Substance: LOSARTAN
  9. METOPROLOL. [Concomitant]
     Active Substance: METOPROLOL
  10. ASPIRIN. [Concomitant]
     Active Substance: ASPIRIN
  11. GLIPIZIDE. [Concomitant]
     Active Substance: GLIPIZIDE

REACTIONS (2)
  - Prostate cancer stage I [None]
  - Acute myocardial infarction [None]

NARRATIVE: CASE EVENT DATE: 20181024
